FAERS Safety Report 13766657 (Version 1)
Quarter: 2017Q3

REPORT INFORMATION
  Report Type: Spontaneous
  Country: GB (occurrence: GB)
  Receive Date: 20170719
  Receipt Date: 20170719
  Transmission Date: 20171127
  Serious: Yes (Death, Hospitalization)
  Sender: FDA-Public Use
  Company Number: GB-PFIZER INC-2628897

PATIENT
  Age: 16 Year
  Sex: Female

DRUGS (2)
  1. METHOTREXATE SODIUM. [Suspect]
     Active Substance: METHOTREXATE SODIUM
     Indication: CHEMOTHERAPY
     Dosage: 25 MG/M2, FREQ: 1 WEEK, INTERVAL: 1
     Route: 048
     Dates: end: 20140112
  2. MERCAPTOPURINE. [Suspect]
     Active Substance: MERCAPTOPURINE
     Indication: CHEMOTHERAPY
     Dosage: 50 MG/M2, FREQ: 1 DAY, INTERVAL: 1
     Route: 048
     Dates: end: 20140112

REACTIONS (9)
  - Toxicity to various agents [Not Recovered/Not Resolved]
  - Rash [Not Recovered/Not Resolved]
  - Drug prescribing error [Not Recovered/Not Resolved]
  - Mucosal inflammation [Not Recovered/Not Resolved]
  - Respiratory tract haemorrhage [Not Recovered/Not Resolved]
  - Cardiac arrest [Fatal]
  - Stevens-Johnson syndrome [Not Recovered/Not Resolved]
  - Blister [Not Recovered/Not Resolved]
  - Pancytopenia [Not Recovered/Not Resolved]

NARRATIVE: CASE EVENT DATE: 20140112
